FAERS Safety Report 23862854 (Version 1)
Quarter: 2024Q2

REPORT INFORMATION
  Report Type: Spontaneous
  Country: US (occurrence: US)
  Receive Date: 20240516
  Receipt Date: 20240516
  Transmission Date: 20240716
  Serious: Yes (Hospitalization)
  Sender: FDA-Public Use
  Company Number: US-BRISTOL-MYERS SQUIBB COMPANY-2024-075871

PATIENT
  Age: 59 Year
  Sex: Female

DRUGS (2)
  1. SPRYCEL [Suspect]
     Active Substance: DASATINIB
     Indication: Acute lymphocytic leukaemia
     Route: 048
     Dates: start: 202405
  2. ZARXIO [Concomitant]
     Active Substance: FILGRASTIM-SNDZ
     Dosage: ZARXIO SYRINGE

REACTIONS (2)
  - Full blood count abnormal [Unknown]
  - Vomiting [Unknown]
